FAERS Safety Report 16541181 (Version 1)
Quarter: 2019Q3

REPORT INFORMATION
  Report Type: Spontaneous
  Country: US (occurrence: US)
  Receive Date: 20190708
  Receipt Date: 20190708
  Transmission Date: 20191004
  Serious: Yes (Other)
  Sender: FDA-Public Use
  Company Number: US-PFIZER INC-2019278221

PATIENT
  Sex: Female

DRUGS (1)
  1. AROMASIN [Suspect]
     Active Substance: EXEMESTANE
     Indication: BREAST CANCER FEMALE
     Dosage: UNK

REACTIONS (11)
  - Arthralgia [Unknown]
  - Constipation [Unknown]
  - Polyp [Unknown]
  - Skin wrinkling [Unknown]
  - Myalgia [Unknown]
  - Hair colour changes [Unknown]
  - Arthritis [Unknown]
  - Diverticulitis [Unknown]
  - Gait disturbance [Unknown]
  - Abdominal pain upper [Unknown]
  - Breast mass [Unknown]
